FAERS Safety Report 9850872 (Version 1)
Quarter: 2014Q1

REPORT INFORMATION
  Report Type: Spontaneous
  Country: DE (occurrence: DE)
  Receive Date: 20140128
  Receipt Date: 20140128
  Transmission Date: 20141002
  Serious: Yes (Other)
  Sender: FDA-Public Use
  Company Number: DE-PFIZER INC-2014025593

PATIENT
  Age: 33 Year
  Sex: Female
  Weight: 65 kg

DRUGS (2)
  1. TREVILOR RETARD [Suspect]
     Indication: DEPRESSION
     Dosage: 150 MG, 1X/DAY PREGNANCY WEEK 0-6 AND AGAIN FROM PREGNANCY WEEK 13 TO THE END
     Route: 048
  2. FOLIO FORTE [Concomitant]
     Indication: PROPHYLAXIS OF NEURAL TUBE DEFECT
     Dosage: 0.8 MG, 1X/DAY GESTATIONAL WEEK 5-37
     Route: 048

REACTIONS (3)
  - Gestational diabetes [Unknown]
  - Polyhydramnios [Unknown]
  - Pre-eclampsia [Unknown]
